FAERS Safety Report 23485424 (Version 1)
Quarter: 2024Q1

REPORT INFORMATION
  Report Type: Spontaneous
  Country: US (occurrence: US)
  Receive Date: 20240206
  Receipt Date: 20240206
  Transmission Date: 20240410
  Serious: No
  Sender: FDA-Public Use
  Company Number: US-SANOFI-01921976

PATIENT

DRUGS (4)
  1. CABLIVI [Suspect]
     Active Substance: CAPLACIZUMAB-YHDP
     Dosage: UNK
  2. CABLIVI [Suspect]
     Active Substance: CAPLACIZUMAB-YHDP
     Dosage: UNK
  3. CABLIVI [Suspect]
     Active Substance: CAPLACIZUMAB-YHDP
     Dosage: UNK
  4. CABLIVI [Suspect]
     Active Substance: CAPLACIZUMAB-YHDP
     Dosage: UNK

REACTIONS (1)
  - Hypersensitivity [Unknown]
